FAERS Safety Report 10391237 (Version 1)
Quarter: 2014Q3

REPORT INFORMATION
  Report Type: Spontaneous
  Country: CN (occurrence: CN)
  Receive Date: 20140818
  Receipt Date: 20140818
  Transmission Date: 20150326
  Serious: Yes (Other)
  Sender: FDA-Public Use
  Company Number: CN-ASTRAZENECA-2014SE57893

PATIENT
  Sex: Female

DRUGS (4)
  1. THROMBIN LYOPHILIZED POWDER [Suspect]
     Active Substance: THROMBIN
  2. LIDOCAINE. [Suspect]
     Active Substance: LIDOCAINE
     Indication: BRONCHOSCOPY
  3. EPINEPHRINE (NON-AZ PRODUCT) [Suspect]
     Active Substance: EPINEPHRINE
  4. FUROSEMIDE. [Suspect]
     Active Substance: FUROSEMIDE
     Route: 045

REACTIONS (3)
  - Blood pressure increased [Recovering/Resolving]
  - Acute pulmonary oedema [Recovering/Resolving]
  - Drug hypersensitivity [Unknown]
